FAERS Safety Report 4924616-9 (Version None)
Quarter: 2006Q1

REPORT INFORMATION
  Report Type: 
  Country: None (occurrence: None)
  Receive Date: 20060127
  Receipt Date: 20051110
  Transmission Date: 20060701
  Serious: Yes (Other)
  Sender: FDA-Public Use
  Company Number: 2005145010

PATIENT
  Sex: Female

DRUGS (3)
  1. PREGABALIN (PREGABALIN) [Suspect]
     Indication: POST HERPETIC NEURALGIA
     Dosage: 225 MG (75 MG, 3 IN 1 ), ORAL
     Route: 048
     Dates: start: 20051004
  2. ANTIHYPERTENSIVES [Concomitant]
  3. ELAVIL [Concomitant]

REACTIONS (6)
  - DRUG EFFECT DECREASED [None]
  - EYE DISORDER [None]
  - MYALGIA [None]
  - PAIN [None]
  - PARAESTHESIA [None]
  - SOMNOLENCE [None]
